FAERS Safety Report 4964278-8 (Version None)
Quarter: 2006Q1

REPORT INFORMATION
  Report Type: 
  Country: None (occurrence: None)
  Receive Date: 20060331
  Receipt Date: 20060318
  Transmission Date: 20060701
  Serious: Yes (Other)
  Sender: FDA-Public Use
  Company Number: 163-C5013-06030639

PATIENT
  Age: 64 Year
  Sex: Male
  Weight: 56.246 kg

DRUGS (2)
  1. CC-5013   REVLIMID [Suspect]
     Indication: MULTIPLE MYELOMA
     Dosage: SEE IMAGE, ORAL
     Route: 048
     Dates: start: 20050127, end: 20051102
  2. DEXAMETHASONE [Suspect]
     Indication: MULTIPLE MYELOMA
     Dosage: 40 MG, QD, DAYS 1-4, 9-12, 17-20, Q28D, ORAL
     Route: 048
     Dates: start: 20050127, end: 20051029

REACTIONS (5)
  - AGITATION [None]
  - LYMPHOPENIA [None]
  - MONOCYTE COUNT DECREASED [None]
  - MOOD SWINGS [None]
  - PULMONARY EMBOLISM [None]
